FAERS Safety Report 6215621-3 (Version None)
Quarter: 2009Q2

REPORT INFORMATION
  Report Type: 
  Country: None (occurrence: None)
  Receive Date: 20090603
  Receipt Date: 20090603
  Transmission Date: 20091009
  Serious: Yes (Hospitalization, Other)
  Sender: FDA-Public Use
  Company Number: None

PATIENT
  Age: 16 Year
  Sex: Male
  Weight: 70.3075 kg

DRUGS (1)
  1. FENTANYL [Suspect]
     Indication: SURGERY
     Dosage: DON'T KNOW NOT IN NOTES PROVIDED BY HOSPITAL INTRAVENOUS
     Route: 042
     Dates: start: 20080408

REACTIONS (5)
  - AGGRESSION [None]
  - HALLUCINATION [None]
  - LOSS OF CONSCIOUSNESS [None]
  - MIGRAINE [None]
  - RESPIRATORY RATE INCREASED [None]
